FAERS Safety Report 16937989 (Version 5)
Quarter: 2020Q1

REPORT INFORMATION
  Report Type: Report from Study
  Country: RU (occurrence: RU)
  Receive Date: 20191018
  Receipt Date: 20200129
  Transmission Date: 20200409
  Serious: Yes (Life-Threatening, Hospitalization)
  Sender: FDA-Public Use
  Company Number: NVSC2019RU003460

PATIENT
  Age: 35 Year
  Sex: Female
  Weight: 57.1 kg

DRUGS (24)
  1. VANCOMYCIN [Concomitant]
     Active Substance: VANCOMYCIN
     Indication: FEBRILE NEUTROPENIA
     Dosage: UNK
     Route: 065
     Dates: start: 20190909, end: 20190914
  2. POTASSIUM CHLORIDE. [Concomitant]
     Active Substance: POTASSIUM CHLORIDE
     Indication: PROPHYLAXIS
     Dosage: UNK
     Route: 065
     Dates: start: 20190903
  3. FOSFOMYCIN [Concomitant]
     Active Substance: FOSFOMYCIN
     Indication: FEBRILE NEUTROPENIA
     Dosage: UNK
     Route: 065
     Dates: start: 20190922, end: 20190927
  4. KETOPROFEN. [Concomitant]
     Active Substance: KETOPROFEN
     Indication: FEBRILE NEUTROPENIA
     Dosage: UNK
     Route: 065
     Dates: start: 20190907, end: 20191021
  5. MIDOSTAURIN [Suspect]
     Active Substance: MIDOSTAURIN
     Indication: ACUTE MYELOID LEUKAEMIA
     Dosage: 25 MG, UNK
     Route: 048
     Dates: start: 20190913, end: 20190926
  6. ACYCLOVIR. [Concomitant]
     Active Substance: ACYCLOVIR
     Indication: ANTIVIRAL PROPHYLAXIS
     Dosage: UNK
     Route: 065
     Dates: start: 20190903
  7. ANIDULAFUNGIN [Concomitant]
     Active Substance: ANIDULAFUNGIN
     Indication: PROCTITIS
  8. TIGECYCLINE. [Concomitant]
     Active Substance: TIGECYCLINE
     Indication: FEBRILE NEUTROPENIA
     Dosage: UNK
     Route: 065
     Dates: start: 20190914, end: 20190927
  9. ALBUMEN [Concomitant]
     Active Substance: EGG WHITE
     Indication: BLOOD ALBUMIN DECREASED
     Dosage: UNK
     Route: 065
     Dates: start: 20190927, end: 20191021
  10. DIACARB [Concomitant]
     Indication: PROPHYLAXIS
     Dosage: UNK
     Route: 065
     Dates: start: 20190929, end: 20191021
  11. VIKASOL [Concomitant]
     Active Substance: MENADIONE
     Indication: PROPHYLAXIS
     Dosage: UNK
     Route: 065
     Dates: start: 20191002, end: 20191021
  12. KETOPROFEN. [Concomitant]
     Active Substance: KETOPROFEN
     Indication: PROCTITIS
  13. OMEPRAZOLE. [Concomitant]
     Active Substance: OMEPRAZOLE
     Indication: PROPHYLAXIS
     Dosage: UNK
     Route: 065
     Dates: start: 20190903
  14. AZTREONAM. [Concomitant]
     Active Substance: AZTREONAM
     Indication: SEPSIS
     Dosage: UNK
     Route: 065
     Dates: start: 20190927, end: 20191022
  15. GLUCONATE DE CALCIUM [Concomitant]
     Active Substance: CALCIUM GLUCONATE
     Indication: PROPHYLAXIS
     Dosage: UNK
     Route: 065
     Dates: start: 20190929, end: 20191021
  16. THIAMINE. [Concomitant]
     Active Substance: THIAMINE
     Indication: SEPSIS
     Dosage: UNK
     Route: 065
     Dates: start: 20190927, end: 20191021
  17. PIPERACILLIN AND TAZOBACTAM [Concomitant]
     Active Substance: PIPERACILLIN SODIUM\TAZOBACTAM SODIUM
     Indication: SEPSIS
     Dosage: UNK
     Route: 065
     Dates: start: 20190929, end: 20191021
  18. ANIDULAFUNGIN [Concomitant]
     Active Substance: ANIDULAFUNGIN
     Indication: FEBRILE NEUTROPENIA
     Dosage: UNK
     Route: 065
     Dates: start: 20190924
  19. AMIKACIN. [Concomitant]
     Active Substance: AMIKACIN
     Indication: FEBRILE NEUTROPENIA
     Dosage: UNK
     Route: 065
     Dates: start: 20190911, end: 20190927
  20. COMPARATOR DAUNORUBICIN [Suspect]
     Active Substance: DAUNORUBICIN
     Indication: ACUTE MYELOID LEUKAEMIA
     Dosage: UNK
     Route: 042
     Dates: start: 20190906
  21. COMPARATOR CYTARABINE [Suspect]
     Active Substance: CYTARABINE
     Indication: ACUTE MYELOID LEUKAEMIA
     Dosage: UNK
     Route: 042
     Dates: start: 20190906
  22. CEFOPERAZONE + SULBACTAM [Concomitant]
     Active Substance: CEFOPERAZONE SODIUM\SULBACTAM
     Indication: FEBRILE NEUTROPENIA
     Dosage: UNK
     Route: 065
     Dates: start: 20190907, end: 20190911
  23. MEROPENEM. [Concomitant]
     Active Substance: MEROPENEM
     Indication: FEBRILE NEUTROPENIA
     Dosage: UNK
     Route: 065
     Dates: start: 20190911, end: 20190927
  24. AVIBACTAM [Concomitant]
     Active Substance: AVIBACTAM
     Indication: SEPSIS
     Dosage: UNK
     Route: 065
     Dates: start: 20190927, end: 20191022

REACTIONS (1)
  - Septic shock [Recovered/Resolved]

NARRATIVE: CASE EVENT DATE: 20190927
